FAERS Safety Report 21788691 (Version 1)
Quarter: 2022Q4

REPORT INFORMATION
  Report Type: Spontaneous
  Country: CN (occurrence: CN)
  Receive Date: 20221228
  Receipt Date: 20221228
  Transmission Date: 20230113
  Serious: Yes (Life-Threatening, Hospitalization, Other)
  Sender: FDA-Public Use
  Company Number: CN-PFIZER INC-PV202200127472

PATIENT
  Age: 15 Year
  Sex: Male

DRUGS (16)
  1. METHYLPREDNISOLONE [Suspect]
     Active Substance: METHYLPREDNISOLONE
     Indication: Eosinophilic gastritis
     Dosage: 4 MG, 1X/DAY
     Route: 048
  2. METHYLPREDNISOLONE [Suspect]
     Active Substance: METHYLPREDNISOLONE
     Indication: Helicobacter infection
     Dosage: 2 MG/KG, 1X/DAY
     Route: 048
  3. METHYLPREDNISOLONE [Suspect]
     Active Substance: METHYLPREDNISOLONE
     Indication: Pyloric stenosis
     Dosage: 0.5 MG/KG, 1X/DAY
     Route: 048
  4. METHYLPREDNISOLONE [Suspect]
     Active Substance: METHYLPREDNISOLONE
     Indication: Failure to thrive
  5. METHYLPREDNISOLONE [Suspect]
     Active Substance: METHYLPREDNISOLONE
     Indication: Vomiting
  6. METHYLPREDNISOLONE [Suspect]
     Active Substance: METHYLPREDNISOLONE
     Indication: Gastric ulcer
  7. GLUTAMIC ACID [Suspect]
     Active Substance: GLUTAMIC ACID
     Indication: Eosinophilic gastritis
     Dosage: UNK
  8. GLUTAMIC ACID [Suspect]
     Active Substance: GLUTAMIC ACID
     Indication: Helicobacter infection
  9. GLUTAMIC ACID [Suspect]
     Active Substance: GLUTAMIC ACID
     Indication: Pyloric stenosis
  10. GLUTAMIC ACID [Suspect]
     Active Substance: GLUTAMIC ACID
     Indication: Failure to thrive
  11. SODIUM GUALENATE [Suspect]
     Active Substance: SODIUM GUALENATE
     Indication: Eosinophilic gastritis
     Dosage: UNK
  12. SODIUM GUALENATE [Suspect]
     Active Substance: SODIUM GUALENATE
     Indication: Helicobacter infection
  13. SODIUM GUALENATE [Suspect]
     Active Substance: SODIUM GUALENATE
     Indication: Pyloric stenosis
  14. SODIUM GUALENATE [Suspect]
     Active Substance: SODIUM GUALENATE
     Indication: Failure to thrive
  15. CYCLOSPORINE [Suspect]
     Active Substance: CYCLOSPORINE
     Indication: Graft versus host disease
     Dosage: 35 MG, 1X/DAY
  16. CYCLOSPORINE [Suspect]
     Active Substance: CYCLOSPORINE
     Dosage: 100 MG, 1X/DAY

REACTIONS (3)
  - Drug ineffective [Unknown]
  - Crohn^s disease [Unknown]
  - Graft versus host disease [Unknown]
